FAERS Safety Report 12519200 (Version 1)
Quarter: 2016Q2

REPORT INFORMATION
  Report Type: Report from Study
  Country: US (occurrence: US)
  Receive Date: 20160630
  Receipt Date: 20160630
  Transmission Date: 20160815
  Serious: Yes (Hospitalization)
  Sender: FDA-Public Use
  Company Number: US-ACTELION-A-NJ2016-138283

PATIENT
  Age: 67 Year
  Sex: Male

DRUGS (4)
  1. OPSUMIT [Suspect]
     Active Substance: MACITENTAN
     Indication: PULMONARY ARTERIAL HYPERTENSION
     Dosage: 10 MG, QD
     Route: 048
     Dates: start: 201405
  2. HEPARIN [Suspect]
     Active Substance: HEPARIN SODIUM
     Indication: ARRHYTHMIA
     Dosage: UNK
     Route: 065
     Dates: start: 201601
  3. TRACLEER [Suspect]
     Active Substance: BOSENTAN
     Indication: PULMONARY ARTERIAL HYPERTENSION
     Dosage: 125 MG, BID
     Route: 048
     Dates: end: 201405
  4. OXYGEN. [Concomitant]
     Active Substance: OXYGEN
     Dosage: 3 L, UNK

REACTIONS (7)
  - Asthenia [Unknown]
  - Epistaxis [Not Recovered/Not Resolved]
  - Sepsis [Unknown]
  - Oxygen saturation decreased [Recovering/Resolving]
  - Anticoagulation drug level abnormal [Recovered/Resolved]
  - Atrial fibrillation [Recovered/Resolved]
  - Gastric haemorrhage [Recovered/Resolved]

NARRATIVE: CASE EVENT DATE: 2014
